FAERS Safety Report 19533860 (Version 1)
Quarter: 2021Q3

REPORT INFORMATION
  Report Type: Report from Study
  Country: US (occurrence: US)
  Receive Date: 20210713
  Receipt Date: 20210713
  Transmission Date: 20211014
  Serious: Yes (Hospitalization)
  Sender: FDA-Public Use
  Company Number: US-EISAI MEDICAL RESEARCH-EC-2021-095799

PATIENT
  Sex: Female

DRUGS (2)
  1. LENVATINIB [Suspect]
     Active Substance: LENVATINIB
     Indication: METASTATIC RENAL CELL CARCINOMA
     Dosage: UNKNOWN DOSE AND FREQUENCY
     Route: 048
     Dates: start: 20210527, end: 20210704
  2. EVEROLIMUS. [Suspect]
     Active Substance: EVEROLIMUS
     Indication: METASTATIC RENAL CELL CARCINOMA
     Dosage: UNKNOWN DOSE AND FREQUENCY
     Route: 048
     Dates: start: 20210527, end: 20210704

REACTIONS (1)
  - Thyroiditis [Unknown]

NARRATIVE: CASE EVENT DATE: 20210704
